FAERS Safety Report 9234181 (Version 1)
Quarter: 2013Q2

REPORT INFORMATION
  Report Type: Spontaneous
  Country: US (occurrence: US)
  Receive Date: 20130416
  Receipt Date: 20130416
  Transmission Date: 20140414
  Serious: Yes (Other)
  Sender: FDA-Public Use
  Company Number: US-ASTRAZENECA-2013SE23516

PATIENT
  Age: 38 Year
  Sex: Female
  Weight: 54 kg

DRUGS (2)
  1. ZOLADEX [Suspect]
     Indication: BREAST CANCER
     Dosage: UNK MONTH
     Route: 058
     Dates: end: 201303
  2. FASLODEX [Suspect]
     Indication: BREAST CANCER METASTATIC
     Route: 030
     Dates: start: 201303, end: 201303

REACTIONS (8)
  - Malignant neoplasm progression [Unknown]
  - Ascites [Unknown]
  - Dysphagia [Not Recovered/Not Resolved]
  - Aphagia [Not Recovered/Not Resolved]
  - Insomnia [Not Recovered/Not Resolved]
  - Weight increased [Unknown]
  - Fluid retention [Not Recovered/Not Resolved]
  - Oedema peripheral [Not Recovered/Not Resolved]
